FAERS Safety Report 6395760-7 (Version None)
Quarter: 2009Q4

REPORT INFORMATION
  Report Type: 
  Country: None (occurrence: None)
  Receive Date: 20091009
  Receipt Date: 20090930
  Transmission Date: 20100525
  Serious: Yes (Other)
  Sender: FDA-Public Use
  Company Number: US-WYE-H11322409

PATIENT
  Sex: Male
  Weight: 112 kg

DRUGS (7)
  1. BOSUTINIB [Suspect]
     Indication: CHRONIC MYELOID LEUKAEMIA
     Route: 048
     Dates: start: 20071107
  2. BOSUTINIB [Suspect]
     Route: 048
  3. BOSUTINIB [Suspect]
     Route: 048
  4. BOSUTINIB [Suspect]
     Route: 048
     Dates: end: 20090928
  5. NEUMEGA [Suspect]
     Indication: THROMBOCYTOPENIA
     Route: 058
     Dates: start: 20080423
  6. NEUMEGA [Suspect]
     Route: 058
     Dates: start: 20090102, end: 20090101
  7. NEUMEGA [Suspect]
     Dosage: ^ENTIRE VIAL DAILY^
     Route: 058
     Dates: start: 20090101, end: 20090713

REACTIONS (2)
  - CARDIAC FAILURE CONGESTIVE [None]
  - LEFT VENTRICULAR DYSFUNCTION [None]
